FAERS Safety Report 13489999 (Version 1)
Quarter: 2017Q2

REPORT INFORMATION
  Report Type: Spontaneous
  Country: US (occurrence: US)
  Receive Date: 20170427
  Receipt Date: 20170427
  Transmission Date: 20170830
  Serious: No
  Sender: FDA-Public Use
  Company Number: US-BAYER-2017-079444

PATIENT
  Sex: Female

DRUGS (1)
  1. GADAVIST [Suspect]
     Active Substance: GADOBUTROL
     Dosage: ONCE
     Dates: start: 2017

REACTIONS (1)
  - Swelling face [None]

NARRATIVE: CASE EVENT DATE: 2017
